FAERS Safety Report 13594202 (Version 1)
Quarter: 2017Q2

REPORT INFORMATION
  Report Type: Spontaneous
  Country: US (occurrence: US)
  Receive Date: 20170530
  Receipt Date: 20170530
  Transmission Date: 20170830
  Serious: No
  Sender: FDA-Public Use
  Company Number: US-PFIZER INC-2017238049

PATIENT
  Sex: Female

DRUGS (1)
  1. XELJANZ XR [Suspect]
     Active Substance: TOFACITINIB CITRATE
     Dosage: 11 MG, UNK
     Dates: start: 201608, end: 201611

REACTIONS (14)
  - Hypoaesthesia [Unknown]
  - Gait disturbance [Unknown]
  - Pain [Unknown]
  - Dyspepsia [Unknown]
  - Insomnia [Unknown]
  - Posture abnormal [Unknown]
  - Joint range of motion decreased [Unknown]
  - Arthralgia [Unknown]
  - Peripheral swelling [Unknown]
  - Joint swelling [Unknown]
  - Back pain [Unknown]
  - Headache [Unknown]
  - Neck pain [Unknown]
  - Paraesthesia [Unknown]
